FAERS Safety Report 4913941-3 (Version None)
Quarter: 2006Q1

REPORT INFORMATION
  Report Type: 
  Country: None (occurrence: None)
  Receive Date: 20060113
  Receipt Date: 20051104
  Transmission Date: 20060701
  Serious: No
  Sender: FDA-Public Use
  Company Number: 2005SP003862

PATIENT
  Age: 61 Year
  Sex: Male
  Weight: 95.2554 kg

DRUGS (11)
  1. LUNESTA [Suspect]
     Indication: MIDDLE INSOMNIA
     Dosage: SEE IMAGE
     Route: 048
     Dates: start: 20051026, end: 20050101
  2. LUNESTA [Suspect]
     Indication: MIDDLE INSOMNIA
     Dosage: SEE IMAGE
     Route: 048
     Dates: start: 20051027
  3. SALICYLIC ACID [Concomitant]
  4. ACCUPRIL [Concomitant]
  5. ATORVASTATIN CALCIUM [Concomitant]
  6. PREVACID [Concomitant]
  7. GLUCOPHAGE [Concomitant]
  8. AMARYL [Concomitant]
  9. AVAPRO [Concomitant]
  10. PIOGLITAZONE HCL [Concomitant]
  11. VICODIN [Concomitant]

REACTIONS (2)
  - DYSGEUSIA [None]
  - MEMORY IMPAIRMENT [None]
